FAERS Safety Report 18493888 (Version 30)
Quarter: 2022Q2

REPORT INFORMATION
  Report Type: Report from Study
  Country: CO (occurrence: CO)
  Receive Date: 20201111
  Receipt Date: 20220520
  Transmission Date: 20220721
  Serious: Yes (Other)
  Sender: FDA-Public Use
  Company Number: CO-TAKEDA-CO202012933

PATIENT
  Age: 41 Year
  Sex: Female
  Weight: 80 kg

DRUGS (20)
  1. ICATIBANT [Suspect]
     Active Substance: ICATIBANT ACETATE
     Indication: Hereditary angioedema
     Dosage: 30 MILLIGRAM
     Route: 058
     Dates: start: 20181012
  2. ICATIBANT [Suspect]
     Active Substance: ICATIBANT ACETATE
     Indication: Hereditary angioedema
     Dosage: 30 MILLIGRAM
     Route: 058
     Dates: start: 20181012
  3. ICATIBANT [Suspect]
     Active Substance: ICATIBANT ACETATE
     Dosage: 3 DOSAGE FORM, EVERY 6 HOURS. MAXIMUM 3 SYRINGES WITHIN 24 HOURS
     Route: 058
     Dates: start: 20181012
  4. ICATIBANT [Suspect]
     Active Substance: ICATIBANT ACETATE
     Dosage: 3 DOSAGE FORM, EVERY 6 HOURS. MAXIMUM 3 SYRINGES WITHIN 24 HOURS
     Route: 058
     Dates: start: 20181012
  5. ICATIBANT [Suspect]
     Active Substance: ICATIBANT ACETATE
     Dosage: UNK, Q6HR
     Route: 058
     Dates: start: 20181012
  6. ICATIBANT [Suspect]
     Active Substance: ICATIBANT ACETATE
     Dosage: UNK, Q6HR
     Route: 058
     Dates: start: 20181012
  7. ICATIBANT [Suspect]
     Active Substance: ICATIBANT ACETATE
     Dosage: UNK
     Route: 065
     Dates: start: 20200430, end: 20200430
  8. ICATIBANT [Suspect]
     Active Substance: ICATIBANT ACETATE
     Dosage: UNK
     Route: 065
     Dates: start: 20200430, end: 20200430
  9. ICATIBANT [Suspect]
     Active Substance: ICATIBANT ACETATE
     Dosage: UNK
     Route: 065
     Dates: start: 20200515, end: 20200515
  10. ICATIBANT [Suspect]
     Active Substance: ICATIBANT ACETATE
     Dosage: UNK
     Route: 065
     Dates: start: 20200515, end: 20200515
  11. ICATIBANT [Suspect]
     Active Substance: ICATIBANT ACETATE
     Dosage: UNK
     Route: 065
     Dates: start: 20200527, end: 20200527
  12. ICATIBANT [Suspect]
     Active Substance: ICATIBANT ACETATE
     Dosage: UNK
     Route: 065
     Dates: start: 20200527, end: 20200527
  13. ICATIBANT [Suspect]
     Active Substance: ICATIBANT ACETATE
     Dosage: UNK
     Route: 065
     Dates: start: 20200624, end: 20200624
  14. ICATIBANT [Suspect]
     Active Substance: ICATIBANT ACETATE
     Dosage: UNK
     Route: 065
     Dates: start: 20200624, end: 20200624
  15. ICATIBANT [Suspect]
     Active Substance: ICATIBANT ACETATE
     Dosage: UNK
     Route: 065
     Dates: start: 20200723, end: 20200725
  16. ICATIBANT [Suspect]
     Active Substance: ICATIBANT ACETATE
     Dosage: UNK
     Route: 065
     Dates: start: 20200723, end: 20200725
  17. ICATIBANT [Suspect]
     Active Substance: ICATIBANT ACETATE
     Dosage: UNK, Q6HR
     Route: 058
     Dates: start: 20211229
  18. ICATIBANT [Suspect]
     Active Substance: ICATIBANT ACETATE
     Dosage: UNK, Q6HR
     Route: 058
     Dates: start: 20211229
  19. ICATIBANT [Suspect]
     Active Substance: ICATIBANT ACETATE
     Dosage: UNK, Q6HR
     Route: 058
  20. ICATIBANT [Suspect]
     Active Substance: ICATIBANT ACETATE
     Dosage: UNK, Q6HR
     Route: 058

REACTIONS (8)
  - Nephrolithiasis [Unknown]
  - COVID-19 [Recovered/Resolved]
  - Weight decreased [Recovered/Resolved]
  - Fatigue [Recovered/Resolved]
  - Dyspnoea [Not Recovered/Not Resolved]
  - Abdominal mass [Unknown]
  - Hepatic lesion [Unknown]
  - Weight increased [Unknown]

NARRATIVE: CASE EVENT DATE: 20200406
